FAERS Safety Report 9846547 (Version 1)
Quarter: 2014Q1

REPORT INFORMATION
  Report Type: Spontaneous
  Country: US (occurrence: None)
  Receive Date: 20140122
  Receipt Date: 20140122
  Transmission Date: 20141002
  Serious: Yes (Death)
  Sender: FDA-Public Use
  Company Number: 2014AP000332

PATIENT
  Age: 33 Year
  Sex: Male

DRUGS (2)
  1. TRAMADOL HYDROCHLORIDE TABLETS [Suspect]
     Route: 048
  2. CARBON MONOXIDE [Suspect]
     Route: 055

REACTIONS (3)
  - Exposure via ingestion [None]
  - Exposure via inhalation [None]
  - Environmental exposure [None]
